FAERS Safety Report 6210939-2 (Version None)
Quarter: 2009Q2

REPORT INFORMATION
  Report Type: 
  Country: None (occurrence: None)
  Receive Date: 20090601
  Receipt Date: 20090526
  Transmission Date: 20091009
  Serious: Yes (Hospitalization)
  Sender: FDA-Public Use
  Company Number: FR-MERCK-0905FRA00061

PATIENT
  Age: 77 Year
  Sex: Male
  Weight: 69 kg

DRUGS (7)
  1. JANUVIA [Suspect]
     Indication: TYPE 2 DIABETES MELLITUS
     Route: 048
     Dates: start: 20090124, end: 20090124
  2. DIGOXIN [Suspect]
     Indication: MYOCARDIAL ISCHAEMIA
     Route: 048
  3. FLUINDIONE [Suspect]
     Indication: MYOCARDIAL ISCHAEMIA
     Route: 048
  4. RAMIPRIL [Suspect]
     Indication: MYOCARDIAL ISCHAEMIA
     Route: 048
  5. FUROSEMIDE [Suspect]
     Indication: MYOCARDIAL ISCHAEMIA
     Route: 048
  6. FLUTICASONE PROPIONATE AND SALMETEROL XINAFOATE [Suspect]
     Indication: CHRONIC OBSTRUCTIVE PULMONARY DISEASE
  7. TIOTROPIUM BROMIDE [Suspect]
     Indication: CHRONIC OBSTRUCTIVE PULMONARY DISEASE

REACTIONS (3)
  - ABDOMINAL PAIN [None]
  - ANGIOEDEMA [None]
  - PALATAL OEDEMA [None]
